FAERS Safety Report 14929059 (Version 3)
Quarter: 2018Q2

REPORT INFORMATION
  Report Type: Spontaneous
  Country: US (occurrence: US)
  Receive Date: 20180523
  Receipt Date: 20180608
  Transmission Date: 20180711
  Serious: Yes (Other)
  Sender: FDA-Public Use
  Company Number: US-AMGEN-USASP2018068850

PATIENT
  Age: 29 Year
  Sex: Female

DRUGS (6)
  1. ARANESP [Suspect]
     Active Substance: DARBEPOETIN ALFA
     Dosage: 60 MUG, Q2WK
     Route: 065
     Dates: start: 201805
  2. EPOGEN [Suspect]
     Active Substance: ERYTHROPOIETIN
     Dosage: 10000 UNIT, QWK (FOR ABOUT TEN WEEKS)
     Route: 065
  3. EPOGEN [Suspect]
     Active Substance: ERYTHROPOIETIN
     Dosage: 15000 UNIT, QWK
     Route: 065
     Dates: end: 201804
  4. EPOGEN [Suspect]
     Active Substance: ERYTHROPOIETIN
     Dosage: 5000 UNIT, QWK (FOR ABOUT 2 WEEKS)
     Route: 065
  5. EPOGEN [Suspect]
     Active Substance: ERYTHROPOIETIN
     Indication: CHRONIC KIDNEY DISEASE
     Dosage: UNK ( LOW DOSE)
     Route: 065
     Dates: start: 2008
  6. ARANESP [Suspect]
     Active Substance: DARBEPOETIN ALFA
     Indication: PRODUCT USED FOR UNKNOWN INDICATION
     Dosage: 40 MUG, Q3WK
     Route: 065
     Dates: start: 201804, end: 201804

REACTIONS (7)
  - Hepatic encephalopathy [Unknown]
  - Kidney transplant rejection [Unknown]
  - Brain oedema [Unknown]
  - Hypertensive encephalopathy [Unknown]
  - Blood pressure increased [Unknown]
  - Papilloedema [Unknown]
  - Therapy non-responder [Unknown]

NARRATIVE: CASE EVENT DATE: 2011
